FAERS Safety Report 8795907 (Version 2)
Quarter: 2013Q4

REPORT INFORMATION
  Report Type: Report from Study
  Country: CA (occurrence: CA)
  Receive Date: 20120919
  Receipt Date: 20131226
  Transmission Date: 20140711
  Serious: Yes (Life-Threatening, Hospitalization, Other)
  Sender: FDA-Public Use
  Company Number: CA-ELI_LILLY_AND_COMPANY-CA201209002355

PATIENT
  Age: 61 Year
  Sex: Male

DRUGS (14)
  1. TERIPARATIDE [Suspect]
     Indication: OSTEOPOROSIS
     Dosage: 20 UG, QD
     Route: 058
     Dates: start: 20120130
  2. HUMIRA [Concomitant]
     Dosage: UNK, UNKNOWN
     Route: 065
  3. OXY.IR [Concomitant]
     Dosage: UNK, UNKNOWN
     Route: 065
  4. M-ESLON [Concomitant]
     Dosage: UNK, UNKNOWN
     Route: 065
  5. PLAVIX [Concomitant]
     Dosage: UNK, UNKNOWN
     Route: 065
  6. CLONIDINE [Concomitant]
     Dosage: UNK, UNKNOWN
     Route: 065
  7. LORAZEPAM [Concomitant]
     Dosage: UNK, UNKNOWN
     Route: 065
  8. DILTIAZEM [Concomitant]
     Dosage: UNK, UNKNOWN
     Route: 065
  9. SERTRALINE [Concomitant]
     Dosage: UNK, UNKNOWN
     Route: 065
  10. TRAZODONE [Concomitant]
     Dosage: UNK, UNKNOWN
     Route: 065
  11. IMOVANE [Concomitant]
     Dosage: UNK, UNKNOWN
     Route: 065
  12. METOPROLOL [Concomitant]
     Dosage: UNK, UNKNOWN
     Route: 065
  13. RASILEZ [Concomitant]
     Dosage: UNK, UNKNOWN
     Route: 065
  14. CALCIUM +VIT D [Concomitant]
     Dosage: UNK, UNKNOWN
     Route: 065

REACTIONS (8)
  - Respiratory arrest [Recovered/Resolved]
  - Sepsis [Recovered/Resolved]
  - Haematemesis [Not Recovered/Not Resolved]
  - Diarrhoea [Not Recovered/Not Resolved]
  - Herpes zoster [Recovered/Resolved]
  - Local swelling [Not Recovered/Not Resolved]
  - Erythema [Not Recovered/Not Resolved]
  - Wound secretion [Not Recovered/Not Resolved]
